FAERS Safety Report 9862814 (Version 1)
Quarter: 2014Q1

REPORT INFORMATION
  Report Type: Spontaneous
  Country: US (occurrence: None)
  Receive Date: 20140130
  Receipt Date: 20140130
  Transmission Date: 20141002
  Serious: Yes (Hospitalization)
  Sender: FDA-Public Use
  Company Number: 2014AP000556

PATIENT
  Age: 41 Year
  Sex: Female

DRUGS (6)
  1. DILT-XR [Suspect]
  2. HYDROCHLOROTHIAZIDE [Suspect]
  3. CLONAZEPAM TABLETS, USP [Suspect]
  4. DIPHENHYDRAMINE [Suspect]
  5. COCAINE [Suspect]
  6. ACETAMINOPHEN W/HYDROCODONE [Suspect]

REACTIONS (1)
  - Completed suicide [None]
